FAERS Safety Report 17545738 (Version 2)
Quarter: 2020Q3

REPORT INFORMATION
  Report Type: Spontaneous
  Country: DE (occurrence: DE)
  Receive Date: 20200316
  Receipt Date: 20200318
  Transmission Date: 20201105
  Serious: Yes (Hospitalization)
  Sender: FDA-Public Use
  Company Number: DE-MYLANLABS-2020M1026539

PATIENT
  Age: 87 Year
  Sex: Female

DRUGS (6)
  1. IBUPROFEN. [Suspect]
     Active Substance: IBUPROFEN
     Indication: PRODUCT USED FOR UNKNOWN INDICATION
     Dosage: 200 MILLIGRAM (1X)
  2. CARBIMAZOL [Concomitant]
     Active Substance: CARBIMAZOLE
     Dosage: 10 MILLIGRAM (0.5?0?0?0)
  3. BISOPROLOL [Suspect]
     Active Substance: BISOPROLOL
     Indication: PRODUCT USED FOR UNKNOWN INDICATION
     Dosage: 2.5 MILLIGRAM (0.5?0?0?0)
  4. TORASEMIDE [Suspect]
     Active Substance: TORSEMIDE
     Indication: PRODUCT USED FOR UNKNOWN INDICATION
     Dosage: 5 MILLIGRAM (1?0?0?0)
  5. ACETYLSALICYLIC ACID [Concomitant]
     Active Substance: ASPIRIN
     Dosage: 100 MILLIGRAM (1?0?0?0)
  6. ETORICOXIB. [Suspect]
     Active Substance: ETORICOXIB
     Indication: PRODUCT USED FOR UNKNOWN INDICATION
     Dosage: 60 MILLIGRAM (BEI BEDARF)

REACTIONS (5)
  - Cardiac failure [Unknown]
  - Syncope [Unknown]
  - Oedema peripheral [Unknown]
  - Vomiting [Unknown]
  - Abdominal distension [Unknown]
